FAERS Safety Report 24190714 (Version 2)
Quarter: 2024Q3

REPORT INFORMATION
  Report Type: Spontaneous
  Country: DE (occurrence: None)
  Receive Date: 20240808
  Receipt Date: 20240812
  Transmission Date: 20241017
  Serious: Yes (Life-Threatening, Hospitalization)
  Sender: ASTRAZENECA
  Company Number: 2024A042524

PATIENT
  Age: 85 Year
  Sex: Female
  Weight: 53.4 kg

DRUGS (3)
  1. DURVALUMAB [Suspect]
     Active Substance: DURVALUMAB
     Indication: HER2 positive biliary tract cancer
     Route: 042
     Dates: start: 20240108, end: 20240208
  2. TREMELIMUMAB [Suspect]
     Active Substance: TREMELIMUMAB
     Indication: HER2 positive biliary tract cancer
     Route: 042
     Dates: start: 20240108, end: 20240108
  3. CAPECITABINE [Suspect]
     Active Substance: CAPECITABINE
     Indication: HER2 positive biliary tract cancer
     Route: 042
     Dates: start: 20240108, end: 20240216

REACTIONS (2)
  - Embolism [Recovered/Resolved]
  - Immune-mediated encephalopathy [Recovering/Resolving]

NARRATIVE: CASE EVENT DATE: 20240217
